FAERS Safety Report 4359775-2 (Version None)
Quarter: 2004Q2

REPORT INFORMATION
  Report Type: 
  Country: None (occurrence: None)
  Receive Date: 20040518
  Receipt Date: 20040510
  Transmission Date: 20050107
  Serious: Yes (Other)
  Sender: FDA-Public Use
  Company Number: US-GLAXOSMITHKLINE-A0510181A

PATIENT
  Age: 49 Year
  Sex: Male

DRUGS (2)
  1. LAMICTAL [Suspect]
     Route: 048
  2. TOPAMAX [Suspect]
     Route: 065

REACTIONS (6)
  - ACQUIRED NIGHT BLINDNESS [None]
  - BALANCE DISORDER [None]
  - BRADYPHRENIA [None]
  - COORDINATION ABNORMAL [None]
  - ROAD TRAFFIC ACCIDENT [None]
  - VISUAL FIELD DEFECT [None]
